FAERS Safety Report 5552119-X (Version None)
Quarter: 2007Q4

REPORT INFORMATION
  Report Type: 
  Country: None (occurrence: None)
  Receive Date: 20071210
  Receipt Date: 20071127
  Transmission Date: 20080405
  Serious: Yes (Other)
  Sender: FDA-Public Use
  Company Number: CERZ-12002

PATIENT
  Age: 29 Year
  Sex: Female
  Weight: 58 kg

DRUGS (2)
  1. CEREZYME [Suspect]
     Indication: GAUCHER'S DISEASE
     Dates: start: 20050301
  2. CEREZYME [Suspect]
     Indication: GAUCHER'S DISEASE
     Dates: start: 20071001, end: 20071030

REACTIONS (1)
  - ANAEMIA HAEMOLYTIC AUTOIMMUNE [None]
